FAERS Safety Report 13297241 (Version 1)
Quarter: 2017Q1

REPORT INFORMATION
  Report Type: Spontaneous
  Country: US (occurrence: US)
  Receive Date: 20170303
  Receipt Date: 20170303
  Transmission Date: 20170428
  Serious: Yes (Other)
  Sender: FDA-Public Use
  Company Number: None

PATIENT
  Age: 38 Year
  Sex: Male
  Weight: 81 kg

DRUGS (4)
  1. ATORVASTATIN [Suspect]
     Active Substance: ATORVASTATIN
     Indication: DYSLIPIDAEMIA
     Route: 048
     Dates: start: 20160701, end: 20160706
  2. FINGOLIMOD [Concomitant]
     Active Substance: FINGOLIMOD
  3. IBUPROFEN. [Concomitant]
     Active Substance: IBUPROFEN
  4. LORATIDINE [Concomitant]
     Active Substance: LORATADINE

REACTIONS (1)
  - Skin discolouration [None]

NARRATIVE: CASE EVENT DATE: 20170217
